FAERS Safety Report 7892226-X (Version None)
Quarter: 2011Q4

REPORT INFORMATION
  Report Type: 
  Country: None (occurrence: None)
  Receive Date: 20111104
  Receipt Date: 20111026
  Transmission Date: 20120403
  Serious: Yes (Hospitalization)
  Sender: FDA-Public Use
  Company Number: US-BIOGENIDEC-2011BI026273

PATIENT
  Age: 51 Year
  Sex: Female

DRUGS (1)
  1. TYSABRI [Suspect]
     Indication: MULTIPLE SCLEROSIS
     Route: 042
     Dates: start: 20090108

REACTIONS (5)
  - INTERVERTEBRAL DISC PROTRUSION [None]
  - BACK PAIN [None]
  - DEPRESSION [None]
  - SPINAL LAMINECTOMY [None]
  - PROCEDURAL PAIN [None]
